FAERS Safety Report 9168298 (Version 1)
Quarter: 2013Q1

REPORT INFORMATION
  Report Type: Spontaneous
  Country: US (occurrence: US)
  Receive Date: 20130318
  Receipt Date: 20130318
  Transmission Date: 20140127
  Serious: No
  Sender: FDA-Public Use
  Company Number: US-PFIZER INC-2013085378

PATIENT
  Age: 58 Year
  Sex: Female
  Weight: 105.67 kg

DRUGS (3)
  1. ZYVOX [Suspect]
     Indication: STAPHYLOCOCCAL INFECTION
     Dosage: 600 MG, 2X/DAY FOR 42 DAYS FOLLOWED BY 2 WEEKS OFF PERIOD
     Route: 042
     Dates: start: 2007
  2. BACTRIM [Concomitant]
     Dosage: UNK
  3. CIPROFLOXACIN [Concomitant]
     Dosage: UNK
     Route: 042
     Dates: end: 2012

REACTIONS (2)
  - Blood urea abnormal [Unknown]
  - Inappropriate schedule of drug administration [Unknown]
